FAERS Safety Report 20692869 (Version 1)
Quarter: 2022Q2

REPORT INFORMATION
  Report Type: Spontaneous
  Country: US (occurrence: None)
  Receive Date: 20220407
  Receipt Date: 20220407
  Transmission Date: 20220721
  Serious: No
  Sender: FDA-Public Use
  Company Number: None

PATIENT
  Age: 68 Year
  Sex: Male

DRUGS (1)
  1. NINLARO [Suspect]
     Active Substance: IXAZOMIB CITRATE
     Indication: Plasma cell myeloma
     Dosage: OTHER FREQUENCY : DAYS 1, 8, 15;?
     Route: 048
     Dates: start: 20220319, end: 20220319

REACTIONS (3)
  - Diarrhoea [None]
  - Chills [None]
  - Tic [None]

NARRATIVE: CASE EVENT DATE: 20220319
